FAERS Safety Report 9527895 (Version 1)
Quarter: 2013Q3

REPORT INFORMATION
  Report Type: Spontaneous
  Country: US (occurrence: US)
  Receive Date: 20130917
  Receipt Date: 20130917
  Transmission Date: 20140515
  Serious: No
  Sender: FDA-Public Use
  Company Number: US-PFIZER INC-2013263290

PATIENT
  Age: 63 Year
  Sex: Female
  Weight: 65.76 kg

DRUGS (2)
  1. LATANOPROST [Suspect]
     Indication: GLAUCOMA
     Dosage: UNK
     Route: 047
  2. LATANOPROST [Suspect]
     Indication: INTRAOCULAR PRESSURE TEST ABNORMAL

REACTIONS (3)
  - Eye pain [Unknown]
  - Eye pruritus [Unknown]
  - Eye irritation [Unknown]
